FAERS Safety Report 10254904 (Version 1)
Quarter: 2014Q2

REPORT INFORMATION
  Report Type: Spontaneous
  Country: CN (occurrence: CN)
  Receive Date: 20140624
  Receipt Date: 20140624
  Transmission Date: 20141212
  Serious: Yes (Other)
  Sender: FDA-Public Use
  Company Number: CN-MYLANLABS-2014S1014244

PATIENT
  Age: 66 Year
  Sex: Male

DRUGS (2)
  1. EPINEPHRINE [Suspect]
     Indication: ANASTOMOTIC ULCER HAEMORRHAGE
     Dosage: 8ML OF EPINEPHRINE 1:10000
  2. EPINEPHRINE [Suspect]
     Indication: OFF LABEL USE
     Dosage: 8ML OF EPINEPHRINE 1:10000

REACTIONS (2)
  - Injection site haematoma [Recovered/Resolved]
  - Obstruction gastric [Recovered/Resolved]
